FAERS Safety Report 9494187 (Version 5)
Quarter: 2014Q1

REPORT INFORMATION
  Report Type: Report from Study
  Country: DE (occurrence: DE)
  Receive Date: 20130903
  Receipt Date: 20140224
  Transmission Date: 20141002
  Serious: Yes (Hospitalization, Other)
  Sender: FDA-Public Use
  Company Number: DE-ROCHE-1269548

PATIENT
  Age: 75 Year
  Sex: Female
  Weight: 60 kg

DRUGS (11)
  1. TOCILIZUMAB [Suspect]
     Indication: RHEUMATOID ARTHRITIS
     Route: 042
     Dates: start: 20120816, end: 20130405
  2. IBUHEXAL [Concomitant]
     Route: 065
  3. ACTONEL [Concomitant]
     Route: 065
  4. VERAHEXAL [Concomitant]
     Route: 065
  5. OMEPRAZOL [Concomitant]
     Route: 065
  6. SIMVAHEXAL [Concomitant]
     Route: 065
  7. NOVAMINSULFON [Concomitant]
     Route: 065
  8. MUCOFALK [Concomitant]
     Route: 065
  9. PREDNISOLON [Concomitant]
     Route: 065
  10. PANTOZOL (GERMANY) [Concomitant]
     Route: 065
  11. CALCILAC (GERMANY) [Concomitant]
     Dosage: CHEWING TABLET
     Route: 065

REACTIONS (2)
  - Skin ulcer [Recovering/Resolving]
  - Joint abscess [Recovering/Resolving]
